FAERS Safety Report 7724098-8 (Version None)
Quarter: 2011Q3

REPORT INFORMATION
  Report Type: 
  Country: None (occurrence: None)
  Receive Date: 20110901
  Receipt Date: 20110829
  Transmission Date: 20111222
  Serious: Yes (Death)
  Sender: FDA-Public Use
  Company Number: US-ASTRAZENECA-2007UW09793

PATIENT
  Age: 21525 Day
  Sex: Male
  Weight: 70.8 kg

DRUGS (19)
  1. SEROQUEL [Suspect]
     Dosage: 100-400 MG
     Route: 048
     Dates: start: 20080116
  2. SEROQUEL [Suspect]
     Dosage: 100-400 MG
     Route: 048
     Dates: start: 20080116
  3. ATIVAN [Concomitant]
     Dosage: 1-2 MG Q6H PRN
     Dates: start: 20050125
  4. REMERON [Concomitant]
     Dates: start: 20030618
  5. EFFEXOR XR [Concomitant]
     Dosage: 75 MG TO 150 MG
     Dates: start: 20031204
  6. PSEUDOVENT [Concomitant]
     Dates: start: 20030529
  7. OLANZAPINE [Concomitant]
     Dates: start: 20050125
  8. SEROQUEL [Suspect]
     Indication: SCHIZOPHRENIA
     Dosage: 25 MG TO 300 MG.
     Route: 048
     Dates: start: 20030409
  9. SEROQUEL [Suspect]
     Indication: SLEEP DISORDER
     Dosage: 25 MG TO 300 MG.
     Route: 048
     Dates: start: 20030409
  10. LEXAPRO [Concomitant]
     Dates: start: 20030409
  11. APAP TAB [Concomitant]
     Dosage: 650 MG Q4H PRN
     Dates: start: 20050126
  12. SEROQUEL [Suspect]
     Indication: AFFECTIVE DISORDER
     Dosage: 25 MG TO 300 MG.
     Route: 048
     Dates: start: 20030409
  13. TRAZODONE HCL [Concomitant]
     Dates: start: 20030719
  14. METFORMIN [Concomitant]
     Indication: DIABETES MELLITUS
     Route: 048
     Dates: start: 20070709, end: 20080116
  15. DEPAKOTE ER [Concomitant]
     Dates: start: 20030311
  16. SEROQUEL [Suspect]
     Dosage: 100-400 MG
     Route: 048
     Dates: start: 20080116
  17. BIAXIN XL [Concomitant]
     Dates: start: 20030529
  18. MIRTAZAPINE [Concomitant]
     Dosage: 30MG O/D
     Dates: start: 20040105
  19. HYDROXYZINE [Concomitant]
     Dosage: 25 MG Q4H PRN
     Dates: start: 20050125

REACTIONS (1)
  - DEATH [None]
